FAERS Safety Report 24351971 (Version 1)
Quarter: 2024Q3

REPORT INFORMATION
  Report Type: Spontaneous
  Country: US (occurrence: None)
  Receive Date: 20240921
  Receipt Date: 20240921
  Transmission Date: 20241016
  Serious: Yes (Disabling)
  Sender: Public
  Company Number: None

PATIENT
  Age: 30 Year
  Sex: Female
  Weight: 58.5 kg

DRUGS (10)
  1. MONTELUKAST [Suspect]
     Active Substance: MONTELUKAST SODIUM
     Indication: Asthma
  2. VENTOLIN [Concomitant]
     Active Substance: ALBUTEROL SULFATE
  3. FLovent HFAmult [Concomitant]
  4. A [Concomitant]
  5. VITAMIN B COMPLEX [Concomitant]
     Active Substance: CYANOCOBALAMIN\DEXPANTHENOL\NIACINAMIDE\PYRIDOXINE HYDROCHLORIDE\RIBOFLAVIN 5^-PHOSPHATE SODIUM\THIA
  6. C [Concomitant]
  7. D [Concomitant]
  8. TOCOPHEROL [Concomitant]
     Active Substance: TOCOPHEROL
  9. SELENIUM [Concomitant]
     Active Substance: SELENIUM
  10. ZINC [Concomitant]
     Active Substance: ZINC

REACTIONS (3)
  - Depression [None]
  - Suicidal ideation [None]
  - Obsessive-compulsive disorder [None]
